FAERS Safety Report 10205429 (Version 1)
Quarter: 2014Q2

REPORT INFORMATION
  Report Type: Spontaneous
  Country: US (occurrence: US)
  Receive Date: 20140529
  Receipt Date: 20140529
  Transmission Date: 20141212
  Serious: No
  Sender: FDA-Public Use
  Company Number: US-PFIZER INC-2014147904

PATIENT
  Age: 81 Year
  Sex: Female
  Weight: 72.56 kg

DRUGS (4)
  1. LYRICA [Suspect]
     Indication: FIBROMYALGIA
     Dosage: 50 MG, 2X/DAY
     Dates: start: 2014, end: 2014
  2. LYRICA [Suspect]
     Dosage: 75 MG, 2X/DAY
     Dates: start: 2014, end: 20140527
  3. LOSARTAN [Concomitant]
     Indication: HYPERTENSION
     Dosage: 90 MG, DAILY
  4. DILTIAZEM [Concomitant]
     Indication: HYPERTENSION
     Dosage: 100 MG, 2X/DAY

REACTIONS (3)
  - Joint swelling [Not Recovered/Not Resolved]
  - Arthropathy [Not Recovered/Not Resolved]
  - Peripheral swelling [Not Recovered/Not Resolved]
